FAERS Safety Report 9288533 (Version 3)
Quarter: 2013Q2

REPORT INFORMATION
  Report Type: Spontaneous
  Country: US (occurrence: US)
  Receive Date: 20130514
  Receipt Date: 20130625
  Transmission Date: 20140414
  Serious: Yes (Death, Life-Threatening, Hospitalization)
  Sender: FDA-Public Use
  Company Number: US-009507513-1305USA006751

PATIENT
  Age: 37 Year
  Sex: Male

DRUGS (3)
  1. INTEGRILIN [Suspect]
     Dosage: UNK
  2. LOVENOX [Concomitant]
  3. ASPIRIN [Concomitant]

REACTIONS (4)
  - Haemorrhage intracranial [Fatal]
  - Haemorrhage [Fatal]
  - Adverse event [Fatal]
  - Medication error [Unknown]
